FAERS Safety Report 9729759 (Version 2)
Quarter: 2015Q3

REPORT INFORMATION
  Report Type: Spontaneous
  Country: US (occurrence: US)
  Receive Date: 20131204
  Receipt Date: 20150804
  Transmission Date: 20151125
  Serious: No
  Sender: FDA-Public Use
  Company Number: US-GILEAD-2009-0022439

PATIENT
  Age: 68 Year
  Sex: Female

DRUGS (13)
  1. NIFEDIPINE. [Concomitant]
     Active Substance: NIFEDIPINE
  2. TRAZODONE [Concomitant]
     Active Substance: TRAZODONE HYDROCHLORIDE
  3. POTASSIUM CHLORIDE. [Concomitant]
     Active Substance: POTASSIUM CHLORIDE
  4. DIPHENOXYLATE/ATROPINE [Concomitant]
     Active Substance: ATROPINE\DIPHENOXYLATE
  5. SIMVASTATIN. [Concomitant]
     Active Substance: SIMVASTATIN
  6. PROZAC [Concomitant]
     Active Substance: FLUOXETINE HYDROCHLORIDE
  7. BENAZEPRIL [Concomitant]
     Active Substance: BENAZEPRIL HYDROCHLORIDE
  8. HYDROCHLOROTHIAZIDE. [Concomitant]
     Active Substance: HYDROCHLOROTHIAZIDE
  9. AMIODARONE [Concomitant]
     Active Substance: AMIODARONE
  10. OXYCODONE [Concomitant]
     Active Substance: OXYCODONE
  11. LETAIRIS [Suspect]
     Active Substance: AMBRISENTAN
     Indication: PULMONARY ARTERIAL HYPERTENSION
     Route: 048
     Dates: start: 20090430, end: 20090515
  12. FUROSEMIDE. [Concomitant]
     Active Substance: FUROSEMIDE
  13. CRESTOR [Concomitant]
     Active Substance: ROSUVASTATIN CALCIUM

REACTIONS (1)
  - Oedema [Unknown]

NARRATIVE: CASE EVENT DATE: 20090430
